FAERS Safety Report 7261783-9 (Version None)
Quarter: 2011Q1

REPORT INFORMATION
  Report Type: 
  Country: None (occurrence: None)
  Receive Date: 20110130
  Receipt Date: 20101026
  Transmission Date: 20110831
  Serious: No
  Sender: FDA-Public Use
  Company Number: US-ABBOTT-10P-163-0681268-00

PATIENT
  Age: 50 Year
  Sex: Male

DRUGS (3)
  1. VOLTAREN [Concomitant]
     Indication: ANKYLOSING SPONDYLITIS
  2. AZULFIDINE [Concomitant]
     Indication: ANKYLOSING SPONDYLITIS
  3. HUMIRA [Suspect]
     Indication: ANKYLOSING SPONDYLITIS
     Dates: start: 20101007, end: 20101021

REACTIONS (3)
  - RHINORRHOEA [None]
  - NASOPHARYNGITIS [None]
  - OROPHARYNGEAL PAIN [None]
